FAERS Safety Report 14818651 (Version 3)
Quarter: 2018Q4

REPORT INFORMATION
  Report Type: Spontaneous
  Country: US (occurrence: US)
  Receive Date: 20180427
  Receipt Date: 20181024
  Transmission Date: 20190204
  Serious: No
  Sender: FDA-Public Use
  Company Number: US-PFIZER INC-2017310858

PATIENT
  Age: 25 Year
  Sex: Female
  Weight: 56 kg

DRUGS (5)
  1. LYRICA [Suspect]
     Active Substance: PREGABALIN
     Indication: NEUROMUSCULAR PAIN
  2. LYRICA [Suspect]
     Active Substance: PREGABALIN
     Indication: GENITO-PELVIC PAIN/PENETRATION DISORDER
  3. LYRICA [Suspect]
     Active Substance: PREGABALIN
     Indication: MUSCULOSKELETAL DISORDER
     Dosage: 500 MG, DAILY (200 MG DOSE IN AM 1 TIME DAILY THEN 300 MG DOSE IN THE EVENING)
     Route: 048
     Dates: start: 201603
  4. LYRICA [Suspect]
     Active Substance: PREGABALIN
     Indication: VULVOVAGINAL PAIN
  5. TIZANIDINE. [Concomitant]
     Active Substance: TIZANIDINE
     Indication: MUSCLE RELAXANT THERAPY
     Dosage: 4 MG, 4X/DAY
     Route: 048

REACTIONS (6)
  - Product physical consistency issue [Unknown]
  - Product use in unapproved indication [Unknown]
  - Malaise [Unknown]
  - Cholelithiasis [Unknown]
  - Product container issue [Unknown]
  - Intentional product misuse [Unknown]

NARRATIVE: CASE EVENT DATE: 201603
